FAERS Safety Report 10571259 (Version 2)
Quarter: 2014Q4

REPORT INFORMATION
  Report Type: Spontaneous
  Country: ES (occurrence: ES)
  Receive Date: 20141107
  Receipt Date: 20141107
  Transmission Date: 20150529
  Serious: Yes (Life-Threatening, Hospitalization, Other)
  Sender: FDA-Public Use
  Company Number: ES-SA-THYM-1003402

PATIENT
  Age: 22 Year
  Sex: Male
  Weight: 87 kg

DRUGS (4)
  1. THYMOGLOBULINE [Suspect]
     Active Substance: LAPINE T-LYMPHOCYTE IMMUNE GLOBULIN
     Indication: BONE MARROW CONDITIONING REGIMEN
     Dosage: 200 UNK, QD DOSE:200 UNIT(S)
     Route: 042
     Dates: start: 20110506, end: 20110508
  2. FLUDARABINE PHOSPHATE. [Suspect]
     Active Substance: FLUDARABINE PHOSPHATE
     Indication: BONE MARROW CONDITIONING REGIMEN
     Dosage: UNK, QD
     Route: 042
     Dates: start: 20110504, end: 20110507
  3. CYCLOPHOSPHAMIDE. [Concomitant]
     Active Substance: CYCLOPHOSPHAMIDE
     Indication: BONE MARROW CONDITIONING REGIMEN
     Dosage: UNK
     Route: 042
     Dates: start: 20110504, end: 20110507
  4. ACICLOVIR [Concomitant]
     Active Substance: ACYCLOVIR
     Indication: PROPHYLAXIS

REACTIONS (9)
  - Pneumonia bacterial [Unknown]
  - Subdural haematoma [Unknown]
  - Encephalopathy [Unknown]
  - Febrile neutropenia [Unknown]
  - Generalised tonic-clonic seizure [Recovered/Resolved]
  - Pleural effusion [Unknown]
  - Epstein-Barr virus associated lymphoproliferative disorder [Recovered/Resolved]
  - Epstein-Barr virus test positive [Unknown]
  - Tooth abscess [Unknown]

NARRATIVE: CASE EVENT DATE: 2011
